FAERS Safety Report 9725393 (Version 1)
Quarter: 2013Q4

REPORT INFORMATION
  Report Type: Spontaneous
  Country: US (occurrence: None)
  Receive Date: 20131202
  Receipt Date: 20131202
  Transmission Date: 20140711
  Serious: Yes (Other)
  Sender: FDA-Public Use
  Company Number: None

PATIENT
  Age: 43 Year
  Sex: Female
  Weight: 90.72 kg

DRUGS (1)
  1. CIPRO 500 MG COBRA [Suspect]
     Indication: SINUSITIS
     Route: 048

REACTIONS (24)
  - Nausea [None]
  - Fatigue [None]
  - Pain in extremity [None]
  - Arthralgia [None]
  - Neuropathy peripheral [None]
  - Abasia [None]
  - Arthralgia [None]
  - Joint stiffness [None]
  - Dysstasia [None]
  - Myalgia [None]
  - Dizziness [None]
  - Asthenia [None]
  - Confusional state [None]
  - Aphasia [None]
  - Depression [None]
  - Neck pain [None]
  - Photophobia [None]
  - Ear pain [None]
  - Palpitations [None]
  - Pyrexia [None]
  - Chills [None]
  - Vomiting [None]
  - Feeling abnormal [None]
  - Headache [None]
